FAERS Safety Report 6755021-0 (Version None)
Quarter: 2010Q2

REPORT INFORMATION
  Report Type: 
  Country: None (occurrence: None)
  Receive Date: 20100602
  Receipt Date: 20100524
  Transmission Date: 20101027
  Serious: No
  Sender: FDA-Public Use
  Company Number: 005388

PATIENT
  Sex: Female
  Weight: 59.8 kg

DRUGS (16)
  1. KEPPRA [Suspect]
     Indication: CONVULSION
     Dosage: (500 MG, 500 MG EVERY OTHER DAY ORAL), (500 MG QD ORAL), (ORAL), (2000 MG BID ORAL), (ORAL)
     Route: 048
     Dates: start: 20090101, end: 20090701
  2. KEPPRA [Suspect]
     Indication: CONVULSION
     Dosage: (500 MG, 500 MG EVERY OTHER DAY ORAL), (500 MG QD ORAL), (ORAL), (2000 MG BID ORAL), (ORAL)
     Route: 048
     Dates: start: 20090701, end: 20090701
  3. KEPPRA [Suspect]
     Indication: CONVULSION
     Dosage: (500 MG, 500 MG EVERY OTHER DAY ORAL), (500 MG QD ORAL), (ORAL), (2000 MG BID ORAL), (ORAL)
     Route: 048
     Dates: start: 20100101, end: 20100120
  4. KEPPRA [Suspect]
     Indication: CONVULSION
     Dosage: (500 MG, 500 MG EVERY OTHER DAY ORAL), (500 MG QD ORAL), (ORAL), (2000 MG BID ORAL), (ORAL)
     Route: 048
     Dates: start: 20090101, end: 20100201
  5. KEPPRA [Suspect]
     Indication: CONVULSION
     Dosage: (500 MG, 500 MG EVERY OTHER DAY ORAL), (500 MG QD ORAL), (ORAL), (2000 MG BID ORAL), (ORAL)
     Route: 048
     Dates: start: 20100120
  6. CLONAZEPAM [Suspect]
     Indication: CONVULSION
     Dosage: ( ORAL)
     Route: 048
     Dates: start: 20090701, end: 20090801
  7. LORAZEPAM [Concomitant]
  8. PAROXETINE HCL [Concomitant]
  9. CALTRATE + D /01721501/ [Concomitant]
  10. CITRUCEL [Concomitant]
  11. OMEPRAZOLE [Concomitant]
  12. NASACORT [Concomitant]
  13. ASTELIN [Concomitant]
  14. NIACIN [Concomitant]
  15. FOLIC ACID [Concomitant]
  16. MAGNESIUM OXIDE [Concomitant]

REACTIONS (4)
  - ASTHENIA [None]
  - BLOOD TEST ABNORMAL [None]
  - FEEDING DISORDER [None]
  - TREMOR [None]
